FAERS Safety Report 14446745 (Version 2)
Quarter: 2018Q1

REPORT INFORMATION
  Report Type: Report from Study
  Country: AT (occurrence: AT)
  Receive Date: 20180126
  Receipt Date: 20180207
  Transmission Date: 20180509
  Serious: Yes (Hospitalization)
  Sender: FDA-Public Use
  Company Number: AT-BAYER-2017-180686

PATIENT
  Age: 35 Year
  Sex: Female

DRUGS (1)
  1. JAYDESS [Suspect]
     Active Substance: LEVONORGESTREL
     Dosage: 14 MCG/24HR, CONT
     Route: 015
     Dates: start: 20150306

REACTIONS (7)
  - Drug ineffective [Unknown]
  - Peritoneal haemorrhage [Unknown]
  - Ectopic pregnancy with contraceptive device [Unknown]
  - Procedural pain [Unknown]
  - Depressed mood [Unknown]
  - Ruptured ectopic pregnancy [Unknown]
  - Abdominal pain lower [Unknown]

NARRATIVE: CASE EVENT DATE: 20170917
